FAERS Safety Report 16545192 (Version 1)
Quarter: 2019Q3

REPORT INFORMATION
  Report Type: Spontaneous
  Country: AU (occurrence: AU)
  Receive Date: 20190709
  Receipt Date: 20190709
  Transmission Date: 20191004
  Serious: Yes (Other)
  Sender: FDA-Public Use
  Company Number: AU-PFIZER INC-2019286978

PATIENT
  Age: 71 Year
  Sex: Male

DRUGS (3)
  1. PREDNISOLONE. [Suspect]
     Active Substance: PREDNISOLONE
     Indication: PARANEOPLASTIC RETINOPATHY
     Dosage: 75 MG, CYCLIC
     Dates: start: 2017
  2. PREDNISOLONE. [Suspect]
     Active Substance: PREDNISOLONE
     Dosage: 2.5 MG, CYCLIC
  3. DOCETAXEL. [Suspect]
     Active Substance: DOCETAXEL
     Indication: PARANEOPLASTIC RETINOPATHY
     Dosage: UNK, CYCLIC
     Dates: start: 2017

REACTIONS (3)
  - Febrile neutropenia [Unknown]
  - Toxicity to various agents [Unknown]
  - Pulmonary embolism [Unknown]
